FAERS Safety Report 16788610 (Version 2)
Quarter: 2019Q4

REPORT INFORMATION
  Report Type: Report from Study
  Country: None (occurrence: NL)
  Receive Date: 20190910
  Receipt Date: 20191224
  Transmission Date: 20200122
  Serious: Yes (Other)
  Sender: FDA-Public Use
  Company Number: NL-ABBVIE-18S-114-2483187-00

PATIENT
  Sex: Female
  Weight: 60 kg

DRUGS (4)
  1. MADOPAR HBS [Concomitant]
     Active Substance: BENSERAZIDE HYDROCHLORIDE\LEVODOPA
     Indication: PRODUCT USED FOR UNKNOWN INDICATION
     Route: 065
  2. MADOPAR 125 [Concomitant]
     Active Substance: BENSERAZIDE HYDROCHLORIDE\LEVODOPA
     Indication: PRODUCT USED FOR UNKNOWN INDICATION
     Route: 065
  3. DUODOPA [Suspect]
     Active Substance: CARBIDOPA\LEVODOPA
     Indication: PARKINSON^S DISEASE
     Dosage: MD: 5.5, CD: 2.6, ED: 1.3
     Route: 050
     Dates: start: 20150520
  4. DUODOPA [Suspect]
     Active Substance: CARBIDOPA\LEVODOPA
     Dosage: OD:5.5 CD:2.5 ED 1.3
     Route: 050

REACTIONS (7)
  - Road traffic accident [Recovered/Resolved]
  - Back disorder [Not Recovered/Not Resolved]
  - Arthritis [Recovered/Resolved]
  - Restlessness [Not Recovered/Not Resolved]
  - Arthropathy [Not Recovered/Not Resolved]
  - Accident [Recovered/Resolved]
  - Pain [Recovering/Resolving]
